FAERS Safety Report 8807248 (Version 1)
Quarter: 2012Q4

REPORT INFORMATION
  Report Type: 
  Country: FR (occurrence: FR)
  Receive Date: 20120925
  Receipt Date: 20120925
  Transmission Date: 20130627
  Serious: Yes (Hospitalization, Other)
  Sender: FDA-Public Use
  Company Number: FR-PFIZER INC-2012230487

PATIENT
  Age: 57 Year
  Sex: Male

DRUGS (11)
  1. RAPAMUNE [Suspect]
     Indication: RENAL TRANSPLANT
     Dosage: 2 mg, UNK
     Route: 048
     Dates: start: 2007, end: 20111124
  2. RAPAMUNE [Suspect]
     Dosage: 0.5 mg, 1x/day
     Dates: start: 20111202
  3. LORAMYC [Concomitant]
  4. VITAMIN K [Concomitant]
     Dosage: 10 mg, UNK
  5. CELLCEPT [Concomitant]
     Dosage: 750 mg, 2x/day
  6. DEDROGYL [Concomitant]
     Dosage: 10 Gtt, weekly
  7. MAGNE-B6 [Concomitant]
  8. PHOSPHONEUROS [Concomitant]
  9. DIFFU K [Concomitant]
  10. SPECIAFOLDINE [Concomitant]
  11. COLCHICINE [Concomitant]

REACTIONS (8)
  - Thrombocytopenia [Recovered/Resolved]
  - Lung abscess [Unknown]
  - Weight decreased [Unknown]
  - Immunosuppressant drug level increased [Recovered/Resolved]
  - Thrombocytopenia [Unknown]
  - Immunosuppressant drug level increased [Unknown]
  - Mouth ulceration [Unknown]
  - Oral candidiasis [Unknown]
